FAERS Safety Report 4280689-0 (Version None)
Quarter: 2004Q1

REPORT INFORMATION
  Report Type: 
  Country: None (occurrence: None)
  Receive Date: 20040127
  Receipt Date: 20040114
  Transmission Date: 20041129
  Serious: No
  Sender: FDA-Public Use
  Company Number: DPC-2004-00013(0)

PATIENT
  Age: 65 Year
  Sex: Female

DRUGS (2)
  1. FLOXIN OTIC [Suspect]
     Indication: OTITIS MEDIA
     Dosage: 10 DROPS (BID), AURICULAR (OTIC)
     Route: 001
  2. ^Z PAK^ (AZITHROMYCIN) (UNKNOWN) (AZITHROMYCIN) [Concomitant]

REACTIONS (5)
  - DEAFNESS UNILATERAL [None]
  - HEADACHE [None]
  - HYPERSENSITIVITY [None]
  - HYPOACUSIS [None]
  - TINNITUS [None]
